FAERS Safety Report 17296109 (Version 1)
Quarter: 2020Q1

REPORT INFORMATION
  Report Type: Spontaneous
  Country: CO (occurrence: CO)
  Receive Date: 20200122
  Receipt Date: 20200122
  Transmission Date: 20200409
  Serious: Yes (Other)
  Sender: FDA-Public Use
  Company Number: CO-ROCHE-2529200

PATIENT
  Sex: Male

DRUGS (1)
  1. OMALIZUMAB. [Suspect]
     Active Substance: OMALIZUMAB
     Indication: URTICARIA CHRONIC
     Dosage: UNK
     Route: 065

REACTIONS (1)
  - Angioedema [Unknown]
